FAERS Safety Report 5195358-2 (Version None)
Quarter: 2006Q4

REPORT INFORMATION
  Report Type: 
  Country: None (occurrence: None)
  Receive Date: 20061229
  Receipt Date: 20061219
  Transmission Date: 20070319
  Serious: Yes (Life-Threatening)
  Sender: FDA-Public Use
  Company Number: JP-PFIZER INC-2006155089

PATIENT

DRUGS (1)
  1. ZYVOX [Suspect]
     Dosage: DAILY DOSE:1200MG
     Route: 042
     Dates: start: 20061213, end: 20061201

REACTIONS (1)
  - MYOCARDIAL INFARCTION [None]
